FAERS Safety Report 25225090 (Version 5)
Quarter: 2025Q2

REPORT INFORMATION
  Report Type: Spontaneous
  Country: ES (occurrence: ES)
  Receive Date: 20250422
  Receipt Date: 20250606
  Transmission Date: 20250716
  Serious: Yes (Life-Threatening, Hospitalization, Other)
  Sender: AUROBINDO
  Company Number: ES-AUROBINDO-AUR-APL-2025-020925

PATIENT
  Age: 60 Year
  Sex: Male
  Weight: 83 kg

DRUGS (25)
  1. BORTEZOMIB [Suspect]
     Active Substance: BORTEZOMIB
     Indication: Plasma cell myeloma
     Route: 058
     Dates: start: 20231201
  2. BORTEZOMIB [Suspect]
     Active Substance: BORTEZOMIB
     Route: 058
  3. BORTEZOMIB [Suspect]
     Active Substance: BORTEZOMIB
     Route: 058
  4. LENALIDOMIDE [Suspect]
     Active Substance: LENALIDOMIDE
     Indication: Plasma cell myeloma
     Route: 048
     Dates: start: 20231201
  5. LENALIDOMIDE [Suspect]
     Active Substance: LENALIDOMIDE
     Route: 048
  6. DARATUMUMAB [Suspect]
     Active Substance: DARATUMUMAB
     Indication: Plasma cell myeloma
     Route: 058
     Dates: start: 20231201
  7. DARATUMUMAB [Suspect]
     Active Substance: DARATUMUMAB
     Route: 058
  8. DARATUMUMAB [Suspect]
     Active Substance: DARATUMUMAB
     Route: 058
  9. DARATUMUMAB [Suspect]
     Active Substance: DARATUMUMAB
     Route: 058
  10. DEXAMETHASONE [Suspect]
     Active Substance: DEXAMETHASONE
     Indication: Plasma cell myeloma
     Route: 048
     Dates: start: 20231201
  11. DEXAMETHASONE [Suspect]
     Active Substance: DEXAMETHASONE
     Route: 048
  12. DEXAMETHASONE [Suspect]
     Active Substance: DEXAMETHASONE
     Route: 048
  13. DEXAMETHASONE [Suspect]
     Active Substance: DEXAMETHASONE
     Route: 048
  14. DARATUMUMAB [Concomitant]
     Active Substance: DARATUMUMAB
     Indication: Plasma cell myeloma
     Route: 058
  15. DARATUMUMAB [Concomitant]
     Active Substance: DARATUMUMAB
     Route: 058
  16. DARATUMUMAB [Concomitant]
     Active Substance: DARATUMUMAB
     Route: 058
  17. DARATUMUMAB [Concomitant]
     Active Substance: DARATUMUMAB
     Route: 058
  18. LENALIDOMIDE [Concomitant]
     Active Substance: LENALIDOMIDE
     Indication: Plasma cell myeloma
     Route: 048
  19. LENALIDOMIDE [Concomitant]
     Active Substance: LENALIDOMIDE
     Route: 048
  20. LENALIDOMIDE [Concomitant]
     Active Substance: LENALIDOMIDE
     Route: 048
  21. LENALIDOMIDE [Concomitant]
     Active Substance: LENALIDOMIDE
     Route: 048
  22. DEXAMETHASONE [Concomitant]
     Active Substance: DEXAMETHASONE
     Indication: Plasma cell myeloma
     Route: 048
  23. DEXAMETHASONE [Concomitant]
     Active Substance: DEXAMETHASONE
     Route: 048
  24. DEXAMETHASONE [Concomitant]
     Active Substance: DEXAMETHASONE
     Route: 048
  25. DEXAMETHASONE [Concomitant]
     Active Substance: DEXAMETHASONE
     Route: 048

REACTIONS (23)
  - Intestinal perforation [Recovered/Resolved]
  - Peritonitis [Unknown]
  - Inflammation [Unknown]
  - Autonomic neuropathy [Recovered/Resolved]
  - Constipation [Recovered/Resolved]
  - Large intestine perforation [Unknown]
  - Diverticulitis [Recovering/Resolving]
  - Ileus paralytic [Recovered/Resolved]
  - Gastrointestinal motility disorder [Recovered/Resolved]
  - Sensory loss [Recovered/Resolved]
  - Abdominal distension [Recovered/Resolved]
  - Abdominal tenderness [Recovered/Resolved]
  - Diverticulum intestinal [Recovered/Resolved]
  - Gastrointestinal sounds abnormal [Recovered/Resolved]
  - Hypophagia [Recovered/Resolved]
  - Pneumoperitoneum [Recovered/Resolved]
  - Gastrointestinal wall thickening [Recovered/Resolved]
  - Focal peritonitis [Recovered/Resolved]
  - Abdominal abscess [Recovered/Resolved]
  - Immunosuppression [Recovered/Resolved]
  - Glomerular filtration rate abnormal [Recovered/Resolved]
  - Intestinal obstruction [Recovered/Resolved]
  - Lymphopenia [Unknown]

NARRATIVE: CASE EVENT DATE: 20231229
